FAERS Safety Report 9531885 (Version 1)
Quarter: 2013Q3

REPORT INFORMATION
  Report Type: Spontaneous
  Country: US (occurrence: None)
  Receive Date: 20130917
  Receipt Date: 20130917
  Transmission Date: 20140515
  Serious: No
  Sender: FDA-Public Use
  Company Number: None

PATIENT
  Age: 59 Year
  Sex: Female

DRUGS (8)
  1. INLYTA [Suspect]
     Dosage: 1 TABLET
     Route: 048
     Dates: start: 20130821, end: 20130916
  2. OXYCODONE [Concomitant]
  3. METFORMIN [Concomitant]
  4. LISINOPRIL [Concomitant]
  5. MORPHINE SULFATE [Concomitant]
  6. XANAX [Concomitant]
  7. METOPROLOL [Concomitant]
  8. METHOCARBAMOL [Concomitant]

REACTIONS (4)
  - Vomiting [None]
  - Headache [None]
  - Asthenia [None]
  - Abasia [None]
